FAERS Safety Report 8997751 (Version 1)
Quarter: 2013Q1

REPORT INFORMATION
  Report Type: Spontaneous
  Country: GB (occurrence: GB)
  Receive Date: 20130104
  Receipt Date: 20130104
  Transmission Date: 20140127
  Serious: Yes (Hospitalization, Disabling)
  Sender: FDA-Public Use
  Company Number: PHHY2012GB122050

PATIENT
  Age: 65 Year
  Sex: Female

DRUGS (9)
  1. ALENDRONIC ACID [Suspect]
     Indication: OSTEOPOROSIS
     Route: 048
     Dates: start: 19980101
  2. CALCICHEW [Concomitant]
  3. AMITRIPTYLINE [Concomitant]
  4. AMLODIPINE [Concomitant]
  5. ATENOLOL [Concomitant]
  6. BENDROFLUMETHIAZIDE [Concomitant]
  7. LISINOPRIL [Concomitant]
  8. PARACETAMOL [Concomitant]
  9. PIROXICAM [Concomitant]

REACTIONS (2)
  - Osteonecrosis [Not Recovered/Not Resolved]
  - Oroantral fistula [Unknown]
